FAERS Safety Report 7986317 (Version 3)
Quarter: 2013Q1

REPORT INFORMATION
  Report Type: Spontaneous
  Country: US (occurrence: US)
  Receive Date: 20110610
  Receipt Date: 20130109
  Transmission Date: 20140127
  Serious: Yes (Other)
  Sender: FDA-Public Use
  Company Number: US-ROCHE-751366

PATIENT
  Age: 18 Year
  Sex: Male
  Weight: 90.7 kg

DRUGS (9)
  1. ACCUTANE [Suspect]
     Indication: ACNE CYSTIC
     Route: 048
     Dates: start: 1991, end: 1992
  2. ACCUTANE [Suspect]
     Route: 048
     Dates: start: 1992, end: 1993
  3. ACCUTANE [Suspect]
     Route: 048
  4. ACCUTANE [Suspect]
     Route: 048
  5. ACCUTANE [Suspect]
     Dosage: 40 MG IN MORNING AND 20 MG AT NIGHT
     Route: 048
  6. ACCUTANE [Suspect]
     Route: 048
  7. ACCUTANE [Suspect]
     Dosage: ALTERNATING DOSES OF 80 MG AND 120 MG
     Route: 048
     Dates: start: 2002, end: 2003
  8. ACCUTANE [Suspect]
     Dosage: FREQUENCY: DAILY
     Route: 048
     Dates: start: 2003, end: 2004
  9. MINOCYCLINE [Concomitant]
     Indication: ACNE
     Route: 065

REACTIONS (24)
  - Crohn^s disease [Unknown]
  - Inflammatory bowel disease [Unknown]
  - Emotional distress [Unknown]
  - Irritable bowel syndrome [Unknown]
  - Colitis [Unknown]
  - Musculoskeletal pain [Unknown]
  - Depression [Unknown]
  - Epistaxis [Unknown]
  - Tinnitus [Unknown]
  - Suicide attempt [Unknown]
  - Mental disorder [Unknown]
  - Suicidal ideation [Unknown]
  - Intervertebral disc degeneration [Unknown]
  - Blood triglycerides increased [Unknown]
  - Dry skin [Unknown]
  - Blood cholesterol increased [Unknown]
  - Acne [Unknown]
  - Proctitis [Unknown]
  - Nail bed disorder [Unknown]
  - Dry eye [Unknown]
  - Hair follicle tumour benign [Unknown]
  - Lip dry [Unknown]
  - Nasal dryness [Unknown]
  - Candida infection [Unknown]
